FAERS Safety Report 5955959-8 (Version None)
Quarter: 2008Q4

REPORT INFORMATION
  Report Type: 
  Country: None (occurrence: None)
  Receive Date: 20081112
  Receipt Date: 20081031
  Transmission Date: 20090506
  Serious: Yes (Other)
  Sender: FDA-Public Use
  Company Number: 231391K08USA

PATIENT
  Age: 49 Year
  Sex: Female
  Weight: 70 kg

DRUGS (8)
  1. REBIF [Suspect]
     Indication: MULTIPLE SCLEROSIS
     Dosage: 44 MCG, 3 IN 1 WEEKS, SUBCUTANEOUS
     Route: 058
     Dates: start: 20051031
  2. ACIPHRX (RABRPRAZOLE SODIUM) [Concomitant]
  3. TRAZODONE HCL [Concomitant]
  4. CLONOPIN [Concomitant]
  5. SYNTHROID [Concomitant]
  6. ADDERALL (OBETROL /01345401./) [Concomitant]
  7. VICODIN [Concomitant]
  8. MOTRIN [Concomitant]

REACTIONS (1)
  - HERNIA [None]
